FAERS Safety Report 4763650-9 (Version None)
Quarter: 2005Q3

REPORT INFORMATION
  Report Type: 
  Country: None (occurrence: None)
  Receive Date: 20050908
  Receipt Date: 20050830
  Transmission Date: 20060218
  Serious: Yes (Hospitalization)
  Sender: FDA-Public Use
  Company Number: PHBS2005AR12855

PATIENT
  Age: 70 Year
  Sex: Male

DRUGS (1)
  1. DIOVAN D [Suspect]
     Indication: HYPERTENSION
     Dosage: 80 MG/DAY
     Route: 065
     Dates: end: 20050826

REACTIONS (1)
  - CEREBROVASCULAR ACCIDENT [None]
